FAERS Safety Report 7663267-2 (Version None)
Quarter: 2011Q3

REPORT INFORMATION
  Report Type: 
  Country: None (occurrence: None)
  Receive Date: 20110805
  Receipt Date: 20100806
  Transmission Date: 20111222
  Serious: No
  Sender: FDA-Public Use
  Company Number: US-ABBOTT-10P-163-0663167-00

PATIENT
  Age: 39 Year
  Sex: Male

DRUGS (2)
  1. NIASPAN [Suspect]
     Indication: LIPIDS
  2. NIASPAN [Suspect]

REACTIONS (1)
  - BLOOD GLUCOSE INCREASED [None]
